FAERS Safety Report 9701875 (Version 3)
Quarter: 2014Q1

REPORT INFORMATION
  Report Type: Spontaneous
  Country: DE (occurrence: DE)
  Receive Date: 20131121
  Receipt Date: 20140110
  Transmission Date: 20141002
  Serious: Yes (Hospitalization, Disabling)
  Sender: FDA-Public Use
  Company Number: DE-SA-2013SA119226

PATIENT
  Age: 48 Year
  Sex: Female

DRUGS (9)
  1. LEMTRADA [Suspect]
     Indication: RELAPSING-REMITTING MULTIPLE SCLEROSIS
     Route: 041
     Dates: start: 20131111, end: 20131115
  2. FAMPYRA [Concomitant]
     Indication: MULTIPLE SCLEROSIS
     Dosage: FOR MONTHS
     Route: 048
  3. BACLOFEN [Concomitant]
     Indication: MULTIPLE SCLEROSIS
     Dosage: FOR MONTHS
     Route: 048
  4. SOLIFENACIN SUCCINATE [Concomitant]
  5. CIPROFLOXACIN [Concomitant]
  6. ACIC [Concomitant]
     Indication: ANTIVIRAL PROPHYLAXIS
     Route: 048
     Dates: start: 20131111
  7. FENISTIL [Concomitant]
     Indication: ALLERGY PROPHYLAXIS
     Route: 048
     Dates: start: 20131110
  8. PARACETAMOL [Concomitant]
  9. RANITIDINE [Concomitant]
     Indication: ALLERGY PROPHYLAXIS
     Route: 048
     Dates: start: 20131110

REACTIONS (4)
  - Gait disturbance [Unknown]
  - Cystitis [Recovering/Resolving]
  - Erythema migrans [Recovered/Resolved]
  - Malaise [Recovered/Resolved]
